FAERS Safety Report 7282399-4 (Version None)
Quarter: 2011Q1

REPORT INFORMATION
  Report Type: 
  Country: None (occurrence: None)
  Receive Date: 20110131
  Receipt Date: 20110118
  Transmission Date: 20110831
  Serious: Yes (Hospitalization)
  Sender: FDA-Public Use
  Company Number: LEO-2011-00082

PATIENT
  Age: 59 Year
  Sex: Female
  Weight: 97.5234 kg

DRUGS (9)
  1. PRAVASTATIN [Concomitant]
  2. JANTOVEN [Concomitant]
  3. TACLONEX SCALP [Suspect]
     Dosage: 1 IN 1 D TOPICAL
     Route: 061
     Dates: start: 20101222
  4. CYANOCOBALAM (CYANOCOBALAMIN) [Concomitant]
  5. LEVOTHYROXINE SODIUM [Concomitant]
  6. LYRICA [Concomitant]
  7. TACLONEX [Suspect]
     Indication: PSORIASIS
     Dosage: 1 IN 1 D TOPICAL; 1 IN 1 D, TOPICAL
     Route: 061
     Dates: start: 20101222
  8. BENICAR [Concomitant]
  9. AGGRENOX 9ACETYLSALICYLIC ACID, DIPYRIDAMOLE) [Concomitant]

REACTIONS (1)
  - CEREBROVASCULAR ACCIDENT [None]
